FAERS Safety Report 24922391 (Version 1)
Quarter: 2025Q1

REPORT INFORMATION
  Report Type: Other
  Country: CA (occurrence: CA)
  Receive Date: 20250204
  Receipt Date: 20250204
  Transmission Date: 20250409
  Serious: Yes (Hospitalization, Other)
  Sender: COREPHARMA LLC
  Company Number: CA-CorePharma LLC-2170426

PATIENT
  Age: 16 Month
  Sex: Female

DRUGS (12)
  1. AMLODIPINE BESYLATE [Suspect]
     Active Substance: AMLODIPINE BESYLATE
     Indication: Product used for unknown indication
  2. ACETAMINOPHEN [Suspect]
     Active Substance: ACETAMINOPHEN
  3. CEFAZOLIN [Concomitant]
     Active Substance: CEFAZOLIN
  4. VANCOMYCIN [Concomitant]
     Active Substance: VANCOMYCIN
  5. PIPERACILLIN AND TAZOBACTAM [Concomitant]
     Active Substance: PIPERACILLIN SODIUM\TAZOBACTAM SODIUM
  6. PREDNISONE [Concomitant]
     Active Substance: PREDNISONE
  7. SIROLIMUS [Concomitant]
     Active Substance: SIROLIMUS
  8. TACROLIMUS [Concomitant]
     Active Substance: TACROLIMUS
  9. MYCOPHENOLATE MOFETIL [Concomitant]
     Active Substance: MYCOPHENOLATE MOFETIL
  10. AMOXICILLIN [Concomitant]
     Active Substance: AMOXICILLIN
  11. SULFAMETHOXAZOLE AND TRIMETHOPRIM [Concomitant]
     Active Substance: SULFAMETHOXAZOLE\TRIMETHOPRIM
  12. ASPIRIN [Suspect]
     Active Substance: ASPIRIN

REACTIONS (2)
  - Linear IgA disease [Recovering/Resolving]
  - Product use issue [Unknown]
